FAERS Safety Report 19676155 (Version 1)
Quarter: 2021Q3

REPORT INFORMATION
  Report Type: Spontaneous
  Country: US (occurrence: US)
  Receive Date: 20210809
  Receipt Date: 20210809
  Transmission Date: 20211014
  Serious: No
  Sender: FDA-Public Use
  Company Number: NVSC2021US173957

PATIENT
  Sex: Female

DRUGS (1)
  1. PROMACTA [Suspect]
     Active Substance: ELTROMBOPAG OLAMINE
     Indication: LIVER DISORDER
     Dosage: 50 MG, QD
     Route: 048
     Dates: start: 20210629

REACTIONS (1)
  - Upper respiratory tract infection [Unknown]
